FAERS Safety Report 23367793 (Version 3)
Quarter: 2024Q2

REPORT INFORMATION
  Report Type: Spontaneous
  Country: JP (occurrence: JP)
  Receive Date: 20240104
  Receipt Date: 20240503
  Transmission Date: 20240715
  Serious: Yes (Hospitalization)
  Sender: FDA-Public Use
  Company Number: JP-Vifor (International) Inc.-VIT-2023-09951

PATIENT
  Age: 80 Year
  Sex: Female
  Weight: 65.3 kg

DRUGS (18)
  1. TAVNEOS [Suspect]
     Active Substance: AVACOPAN
     Indication: Microscopic polyangiitis
     Dosage: 30 MG BID
     Route: 048
     Dates: start: 20230613, end: 20230815
  2. PREDNISOLONE [Concomitant]
     Active Substance: PREDNISOLONE
     Indication: Microscopic polyangiitis
     Dosage: 60 MILLIGRAM, QD
  3. PREDNISOLONE [Concomitant]
     Active Substance: PREDNISOLONE
     Dosage: 7.5 MILLIGRAM, QD
     Dates: start: 20230808
  4. LANSOPRAZOLE [Concomitant]
     Active Substance: LANSOPRAZOLE
     Indication: Prophylaxis
     Dosage: PERORAL MEDICINE
     Route: 048
     Dates: start: 20230520
  5. OLMESARTAN MEDOXOMIL [Concomitant]
     Active Substance: OLMESARTAN MEDOXOMIL
     Indication: Hypertension
     Dosage: PERORAL MEDICINE
     Route: 048
     Dates: start: 20230524, end: 20230811
  6. ALFACALCIDOL [Concomitant]
     Active Substance: ALFACALCIDOL
     Indication: Hypocalcaemia
     Dosage: PERORAL MEDICINE
     Route: 048
     Dates: start: 20230527
  7. TRICHLORMETHIAZIDE [Concomitant]
     Active Substance: TRICHLORMETHIAZIDE
     Indication: Oedema
     Dosage: 1 MILLIGRAM, QD
     Route: 048
     Dates: start: 20230711, end: 20230811
  8. FUROSEMIDE [Concomitant]
     Active Substance: FUROSEMIDE
     Indication: Oedema
     Dosage: 40 MILLIGRAM, Q12H
     Route: 065
     Dates: start: 20230613
  9. SULFAMETHOXAZOLE\TRIMETHOPRIM [Concomitant]
     Active Substance: SULFAMETHOXAZOLE\TRIMETHOPRIM
     Indication: Prophylaxis
     Dosage: 0.5 DOSAGE FORM, QD
     Route: 048
     Dates: start: 20230520
  10. NIFEDIPINE [Concomitant]
     Active Substance: NIFEDIPINE
     Indication: Hypertension
     Dosage: PERORAL MEDICINE
     Route: 048
     Dates: start: 20230515, end: 20230811
  11. ENARODUSTAT [Concomitant]
     Active Substance: ENARODUSTAT
     Indication: Nephrogenic anaemia
     Dosage: 2 MILLIGRAM, QD
     Route: 048
     Dates: start: 20230711
  12. SUVOREXANT [Concomitant]
     Active Substance: SUVOREXANT
     Indication: Insomnia
     Dosage: 15 MILLIGRAM, QD
     Route: 048
  13. SODIUM CHLORIDE [Concomitant]
     Active Substance: SODIUM CHLORIDE
     Dosage: UNK
     Route: 040
     Dates: start: 20230811, end: 20230811
  14. YD SOLITA T NO.1 [Concomitant]
     Dosage: 1500 MILLILITER, QD
     Route: 040
     Dates: start: 20230812, end: 20230812
  15. YD SOLITA T NO.1 [Concomitant]
     Dosage: 500 MILLILITER, QD
     Route: 040
     Dates: start: 20230813, end: 20230815
  16. YD SOLITA T NO.1 [Concomitant]
     Dosage: 1000 MILLILITER
     Dates: start: 20230816, end: 20230821
  17. CYCLOPHOSPHAMIDE [Concomitant]
     Active Substance: CYCLOPHOSPHAMIDE
     Indication: Microscopic polyangiitis
     Dosage: UNK
  18. METHYLPREDNISOLONE [Concomitant]
     Active Substance: METHYLPREDNISOLONE
     Dosage: PULSE

REACTIONS (2)
  - Jaundice [Recovered/Resolved]
  - Hepatic function abnormal [Recovered/Resolved]

NARRATIVE: CASE EVENT DATE: 20230807
